FAERS Safety Report 10776585 (Version 1)
Quarter: 2015Q1

REPORT INFORMATION
  Report Type: Spontaneous
  Country: US (occurrence: None)
  Receive Date: 20150205
  Receipt Date: 20150205
  Transmission Date: 20150721
  Serious: Yes (Other)
  Sender: FDA-Public Use
  Company Number: None

PATIENT
  Age: 45 Year
  Sex: Male
  Weight: 70 kg

DRUGS (2)
  1. ATENURIX (FEBUXOSTAT) 40MG TABLET [Suspect]
     Active Substance: FEBUXOSTAT
     Indication: GOUT
     Dosage: 1 TABLET QD ORAL
     Route: 048
     Dates: start: 20130801, end: 20141231
  2. ATENURIX [Concomitant]

REACTIONS (5)
  - Abnormal behaviour [None]
  - Mood swings [None]
  - Insomnia [None]
  - Irritability [None]
  - Hallucination [None]

NARRATIVE: CASE EVENT DATE: 20120801
